FAERS Safety Report 21248246 (Version 2)
Quarter: 2022Q3

REPORT INFORMATION
  Report Type: Spontaneous
  Country: US (occurrence: US)
  Receive Date: 20220824
  Receipt Date: 20220901
  Transmission Date: 20221027
  Serious: No
  Sender: FDA-Public Use
  Company Number: US-PFIZER INC-202200694146

PATIENT
  Age: 75 Year
  Sex: Female
  Weight: 50.794 kg

DRUGS (2)
  1. IBRANCE [Suspect]
     Active Substance: PALBOCICLIB
     Indication: Breast cancer female
     Dosage: 100 MG
  2. LETROZOLE [Suspect]
     Active Substance: LETROZOLE
     Dosage: 2.5 G
     Dates: start: 201803

REACTIONS (2)
  - Product dispensing issue [Unknown]
  - Feeling abnormal [Unknown]

NARRATIVE: CASE EVENT DATE: 20220822
